FAERS Safety Report 9526047 (Version 2)
Quarter: 2013Q3

REPORT INFORMATION
  Report Type: Spontaneous
  Country: US (occurrence: US)
  Receive Date: 20130916
  Receipt Date: 20130916
  Transmission Date: 20140515
  Serious: Yes (Hospitalization)
  Sender: FDA-Public Use
  Company Number: US-GLENMARK GENERICS INC.-2013GMK006658

PATIENT
  Age: 49 Year
  Sex: Female

DRUGS (2)
  1. VIORELE [Suspect]
     Indication: MENSTRUATION IRREGULAR
     Dosage: UNK
     Route: 048
     Dates: start: 201301, end: 201307
  2. OXYCONTIN [Concomitant]
     Indication: BACK PAIN
     Dosage: UNK

REACTIONS (5)
  - Ventricular dysfunction [Not Recovered/Not Resolved]
  - Pulmonary embolism [Not Recovered/Not Resolved]
  - Palpitations [Not Recovered/Not Resolved]
  - Thrombosis [Not Recovered/Not Resolved]
  - Hyperhidrosis [Not Recovered/Not Resolved]
